FAERS Safety Report 16474288 (Version 4)
Quarter: 2020Q2

REPORT INFORMATION
  Report Type: Spontaneous
  Country: US (occurrence: US)
  Receive Date: 20190625
  Receipt Date: 20200507
  Transmission Date: 20200713
  Serious: No
  Sender: FDA-Public Use
  Company Number: US-PFIZER INC-2019271940

PATIENT
  Age: 44 Year
  Sex: Female
  Weight: 78 kg

DRUGS (2)
  1. METHOTREXATE SODIUM. [Suspect]
     Active Substance: METHOTREXATE SODIUM
     Indication: RHEUMATOID ARTHRITIS
     Dosage: 7.5 MG, UNK
     Dates: start: 2002
  2. METHOTREXATE SODIUM. [Suspect]
     Active Substance: METHOTREXATE SODIUM
     Dosage: 5 MG, DAILY

REACTIONS (6)
  - Gait disturbance [Unknown]
  - Drug ineffective [Unknown]
  - Decreased immune responsiveness [Recovering/Resolving]
  - Nasopharyngitis [Recovered/Resolved]
  - Foot deformity [Unknown]
  - Dysstasia [Unknown]

NARRATIVE: CASE EVENT DATE: 2002
